FAERS Safety Report 25084025 (Version 1)
Quarter: 2025Q1

REPORT INFORMATION
  Report Type: Spontaneous
  Country: US (occurrence: US)
  Receive Date: 20250317
  Receipt Date: 20250317
  Transmission Date: 20250408
  Serious: Yes (Other)
  Sender: MYLAN
  Company Number: US-MYLANLABS-2025M1020412

PATIENT
  Sex: Male
  Weight: 102.06 kg

DRUGS (12)
  1. SERTRALINE HYDROCHLORIDE [Suspect]
     Active Substance: SERTRALINE HYDROCHLORIDE
     Indication: Product used for unknown indication
     Dosage: UNK, BID (HALF A TABLET, TWICE A DAY)
  2. DOXAZOSIN [Suspect]
     Active Substance: DOXAZOSIN MESYLATE
     Indication: Blood pressure abnormal
     Dosage: 8 MILLIGRAM, BID (TWICE A DAY)
  3. DILTIAZEM [Suspect]
     Active Substance: DILTIAZEM
     Indication: Product used for unknown indication
     Dosage: UNK UNK, QD (ONCE AT MIDNIGHT)
     Dates: start: 2021
  4. CLONIDINE [Suspect]
     Active Substance: CLONIDINE
     Indication: Hypertension
     Dosage: UNK, TID (0.2, THREE TIMES A DAY)
  5. CLONIDINE [Suspect]
     Active Substance: CLONIDINE
     Dosage: UNK, QID (0.2, FOUR TIMES A DAY)
  6. ISOSORBIDE [Suspect]
     Active Substance: ISOSORBIDE
     Indication: Product used for unknown indication
  7. LEVOTHYROXINE [Suspect]
     Active Substance: LEVOTHYROXINE
     Indication: Thyroid disorder
     Dosage: 100 MICROGRAM, QD (ONE TIME A DAY)
  8. OLMESARTAN [Suspect]
     Active Substance: OLMESARTAN
     Indication: Product used for unknown indication
  9. TRESIBA [Suspect]
     Active Substance: INSULIN DEGLUDEC
     Indication: Diabetes mellitus
  10. HYDROCHLOROTHIAZIDE [Suspect]
     Active Substance: HYDROCHLOROTHIAZIDE
     Indication: Product used for unknown indication
     Dosage: UNK, QD (12.5, ONCE A DAY)
  11. NIACIN [Suspect]
     Active Substance: NIACIN
     Indication: Product used for unknown indication
  12. FENOFIBRATE [Suspect]
     Active Substance: FENOFIBRATE
     Indication: Blood cholesterol
     Dosage: 145 MILLIGRAM, QD (ONE TIME A DAY)

REACTIONS (9)
  - Eye operation [Unknown]
  - Ichthyosis [Unknown]
  - Fluid retention [Unknown]
  - Bradycardia [Unknown]
  - Lymphoedema [Unknown]
  - Weight increased [Unknown]
  - Dermatitis [Unknown]
  - Rash [Unknown]
  - Oedema [Unknown]
